FAERS Safety Report 23248494 (Version 1)
Quarter: 2023Q4

REPORT INFORMATION
  Report Type: Report from Study
  Country: US (occurrence: US)
  Receive Date: 20231201
  Receipt Date: 20231201
  Transmission Date: 20240109
  Serious: No
  Sender: FDA-Public Use
  Company Number: US-ALXN-A202215282

PATIENT
  Sex: Female

DRUGS (3)
  1. ULTOMIRIS [Suspect]
     Active Substance: RAVULIZUMAB-CWVZ
     Indication: Myasthenia gravis
     Dosage: UNK
     Route: 065
     Dates: start: 20220928
  2. MESTINON [Suspect]
     Active Substance: PYRIDOSTIGMINE BROMIDE
     Indication: Product used for unknown indication
     Dosage: UNK UNK, QID
     Route: 065
  3. LOMOTIL [Concomitant]
     Active Substance: ATROPINE SULFATE\DIPHENOXYLATE HYDROCHLORIDE
     Indication: Clostridium difficile infection
     Dosage: 2 DF, QD
     Route: 065

REACTIONS (14)
  - Blood iron decreased [Unknown]
  - Diplopia [Unknown]
  - Asthenopia [Unknown]
  - General physical health deterioration [Unknown]
  - Muscle fatigue [Unknown]
  - Musculoskeletal discomfort [Recovering/Resolving]
  - Bronchitis [Unknown]
  - Therapeutic response shortened [Unknown]
  - Neck lift [Recovering/Resolving]
  - Colectomy [Unknown]
  - Post procedural complication [Unknown]
  - Neck pain [Recovering/Resolving]
  - Diarrhoea [Unknown]
  - Fatigue [Not Recovered/Not Resolved]

NARRATIVE: CASE EVENT DATE: 20230406
